FAERS Safety Report 4723530-1 (Version None)
Quarter: 2005Q3

REPORT INFORMATION
  Report Type: 
  Country: None (occurrence: None)
  Receive Date: 20050720
  Receipt Date: 20050720
  Transmission Date: 20060218
  Serious: Yes (Other)
  Sender: FDA-Public Use
  Company Number: None

PATIENT
  Age: 14 Year
  Sex: Female
  Weight: 58 kg

DRUGS (4)
  1. AMPHOTERICIN B [Suspect]
     Indication: LUNG DISORDER
     Dosage: 450 MG IV Q 24 X1
     Route: 042
     Dates: start: 20050612
  2. CASPOFUNGIN [Concomitant]
  3. MEROPENEM [Concomitant]
  4. LEVOFLOXACIN [Concomitant]

REACTIONS (4)
  - BLOOD PRESSURE INCREASED [None]
  - DYSPNOEA [None]
  - ERYTHEMA [None]
  - OXYGEN SATURATION DECREASED [None]
